FAERS Safety Report 10378131 (Version 1)
Quarter: 2014Q1

REPORT INFORMATION
  Report Type: Spontaneous
  Country: US (occurrence: None)
  Receive Date: 20140306
  Receipt Date: 20140306
  Transmission Date: 20141002
  Serious: Yes (Other)
  Sender: FDA-Public Use
  Company Number: 163-21880-13013111

PATIENT
  Age: 74 Year
  Sex: Male
  Weight: 87.54 kg

DRUGS (8)
  1. REVLIMID (LENALIDOMIDE) (25 MILLIGRAM, CAPSULES) [Suspect]
     Indication: PLASMA CELL MYELOMA
     Route: 048
     Dates: start: 201205
  2. VELCADE (BORTEZOMIB) [Concomitant]
  3. ZOMETA (ZOLEDRONIC ACID) [Concomitant]
  4. METOPROLOL [Concomitant]
  5. ENALAPRIL [Concomitant]
  6. COUMADIN (WARFARIN SODIUM) [Concomitant]
  7. DEXAMETHASONE [Concomitant]
  8. LASIX (FUROSEMIDE) [Concomitant]

REACTIONS (2)
  - Platelet count decreased [None]
  - Diarrhoea [None]
